FAERS Safety Report 18344509 (Version 1)
Quarter: 2020Q4

REPORT INFORMATION
  Report Type: Spontaneous
  Country: US (occurrence: US)
  Receive Date: 20201001
  Receipt Date: 20201001
  Transmission Date: 20210114
  Serious: Yes (Life-Threatening, Hospitalization)
  Sender: FDA-Public Use
  Company Number: None

PATIENT
  Sex: Female
  Weight: 90.72 kg

DRUGS (4)
  1. PACEMAKER [Concomitant]
     Active Substance: DEVICE
  2. LITHIUM 150 MG [Concomitant]
     Active Substance: LITHIUM
  3. SYNTHROID [Concomitant]
     Active Substance: LEVOTHYROXINE SODIUM
  4. PROAIR HFA [Suspect]
     Active Substance: ALBUTEROL SULFATE
     Indication: ASTHMA
     Dosage: ?          QUANTITY:2 PUFFS;?
     Route: 048
     Dates: end: 20160810

REACTIONS (7)
  - Headache [None]
  - Heart rate irregular [None]
  - Dizziness [None]
  - Cough [None]
  - Dyspnoea [None]
  - Wheezing [None]
  - Loss of consciousness [None]
